FAERS Safety Report 7406761-1 (Version None)
Quarter: 2011Q2

REPORT INFORMATION
  Report Type: 
  Country: None (occurrence: None)
  Receive Date: 20110411
  Receipt Date: 20110203
  Transmission Date: 20111010
  Serious: Yes (Death, Other)
  Sender: FDA-Public Use
  Company Number: GXKR2010NO03246

PATIENT
  Sex: Male

DRUGS (16)
  1. NEULASTA [Interacting]
     Route: 065
  2. MITOXANTRONE HYDROCHLORIDE [Concomitant]
     Dosage: UNK
     Route: 065
     Dates: end: 20090723
  3. NOVANTRONE [Concomitant]
     Indication: PRODUCT USED FOR UNKNOWN INDICATION
     Dates: start: 20090611, end: 20090723
  4. FLUCONAZOLE [Suspect]
     Route: 065
     Dates: start: 20090916
  5. NEULASTA [Interacting]
     Route: 065
  6. CYTARABINE [Concomitant]
     Indication: DIFFUSE LARGE B-CELL LYMPHOMA
     Dates: start: 20090909, end: 20090909
  7. MERONEM [Concomitant]
     Indication: PRODUCT USED FOR UNKNOWN INDICATION
     Dates: start: 20090919
  8. GARAMYCIN [Concomitant]
     Indication: PNEUMONIA BACTERIAL
     Route: 042
     Dates: start: 20090916
  9. CYCLOPHOSPHAMIDE [Interacting]
     Dosage: UNK
     Dates: start: 20090611, end: 20090723
  10. VINCRISTINE SULFATE [Concomitant]
     Dosage: UNK
     Route: 065
     Dates: end: 20090723
  11. BACTRIM [Concomitant]
     Dates: start: 20091001
  12. PREDNISOLONE [Concomitant]
     Indication: PRODUCT USED FOR UNKNOWN INDICATION
     Route: 065
     Dates: start: 20090611, end: 20090909
  13. MABTHERA [Interacting]
     Dosage: UNK
     Dates: start: 20090611, end: 20090723
  14. MEROPENEM [Concomitant]
  15. PENICILLIN G [Concomitant]
     Indication: PNEUMONIA BACTERIAL
     Dosage: UNK
     Route: 042
     Dates: start: 20090216
  16. ETOPOSIDE [Concomitant]
     Indication: DIFFUSE LARGE B-CELL LYMPHOMA
     Dates: start: 20090909, end: 20090909

REACTIONS (4)
  - DRUG INTERACTION [None]
  - PNEUMOCYSTIS JIROVECI PNEUMONIA [None]
  - DEATH [None]
  - PNEUMONITIS [None]
